FAERS Safety Report 6854595-9 (Version None)
Quarter: 2010Q3

REPORT INFORMATION
  Report Type: 
  Country: None (occurrence: None)
  Receive Date: 20100717
  Receipt Date: 20080111
  Transmission Date: 20110219
  Serious: No
  Sender: FDA-Public Use
  Company Number: US-PFIZER INC-2008003601

PATIENT
  Sex: Male
  Weight: 79.545 kg

DRUGS (10)
  1. CHANTIX [Suspect]
     Indication: SMOKING CESSATION THERAPY
     Route: 048
     Dates: start: 20071201
  2. EFFEXOR XR [Concomitant]
     Indication: DEPRESSION
  3. LIPITOR [Concomitant]
     Indication: BLOOD CHOLESTEROL INCREASED
  4. VITAMIN B-12 [Concomitant]
  5. NEURONTIN [Concomitant]
     Indication: PAIN
  6. SYNTHROID [Concomitant]
     Indication: HYPOTHYROIDISM
  7. REMERON [Concomitant]
     Indication: DEPRESSION
  8. KLONOPIN [Concomitant]
     Indication: DEPRESSION
  9. FOLIC ACID [Concomitant]
  10. ASPIRIN [Concomitant]

REACTIONS (1)
  - SOMNOLENCE [None]
